FAERS Safety Report 10994226 (Version 2)
Quarter: 2015Q2

REPORT INFORMATION
  Report Type: Spontaneous
  Country: US (occurrence: None)
  Receive Date: 20150403
  Receipt Date: 20150417
  Transmission Date: 20150821
  Serious: Yes (Other)
  Sender: FDA-Public Use
  Company Number: US-H14001-15-00510

PATIENT
  Age: 57 Year
  Sex: Female
  Weight: 83.9 kg

DRUGS (9)
  1. ADRIAMYCIN [Suspect]
     Active Substance: DOXORUBICIN HYDROCHLORIDE
     Indication: PLASMA CELL MYELOMA
     Dosage: 9 MG/M2, DAY 1-4
     Route: 042
     Dates: start: 20140614, end: 2014
  2. VELCADE [Suspect]
     Active Substance: BORTEZOMIB
     Indication: PLASMA CELL MYELOMA
     Dosage: (1.3 MG/M2, 2 IN 1 WK), SUBCUTANEOUS
     Route: 058
     Dates: start: 20140317, end: 20140321
  3. KETAMINE [Concomitant]
     Active Substance: KETAMINE
  4. CYMBALTA [Concomitant]
     Active Substance: DULOXETINE HYDROCHLORIDE
  5. LORAZEPAM. [Concomitant]
     Active Substance: LORAZEPAM
  6. ZYPREXA [Concomitant]
     Active Substance: OLANZAPINE
  7. RITALIN [Concomitant]
     Active Substance: METHYLPHENIDATE HYDROCHLORIDE
  8. METHADONE [Concomitant]
     Active Substance: METHADONE HYDROCHLORIDE
  9. COREG [Concomitant]
     Active Substance: CARVEDILOL

REACTIONS (3)
  - Cellulitis [None]
  - Osteomyelitis [None]
  - Decubitus ulcer [None]

NARRATIVE: CASE EVENT DATE: 20141213
